FAERS Safety Report 10598709 (Version 1)
Quarter: 2014Q4

REPORT INFORMATION
  Report Type: Spontaneous
  Country: US (occurrence: US)
  Receive Date: 20141121
  Receipt Date: 20141121
  Transmission Date: 20150529
  Serious: No
  Sender: FDA-Public Use
  Company Number: US-009507513-1411USA009514

PATIENT
  Sex: Male

DRUGS (3)
  1. CORICIDIN HBP COLD AND FLU [Suspect]
     Active Substance: ACETAMINOPHEN\CHLORPHENIRAMINE MALEATE
     Indication: UPPER RESPIRATORY TRACT CONGESTION
  2. CORICIDIN HBP COLD AND FLU [Suspect]
     Active Substance: ACETAMINOPHEN\CHLORPHENIRAMINE MALEATE
     Indication: HEADACHE
  3. CORICIDIN HBP COLD AND FLU [Suspect]
     Active Substance: ACETAMINOPHEN\CHLORPHENIRAMINE MALEATE
     Indication: RHINORRHOEA
     Dosage: UNK, UNKNOWN
     Route: 048

REACTIONS (2)
  - Drug effect delayed [Unknown]
  - Drug effect decreased [Unknown]
